FAERS Safety Report 4345189-8 (Version None)
Quarter: 2004Q2

REPORT INFORMATION
  Report Type: 
  Country: None (occurrence: None)
  Receive Date: 20040421
  Receipt Date: 20040421
  Transmission Date: 20050107
  Serious: Yes (Other)
  Sender: FDA-Public Use
  Company Number: None

PATIENT
  Age: 85 Year
  Sex: Female
  Weight: 63.5036 kg

DRUGS (11)
  1. MERREM [Suspect]
     Indication: JAW DISORDER
     Dosage: 500 MG Q12 H IV MINIBAG
     Route: 042
     Dates: start: 20040304, end: 20040323
  2. MERREM [Suspect]
     Indication: SEPSIS
     Dosage: 500 MG Q12 H IV MINIBAG
     Route: 042
     Dates: start: 20040304, end: 20040323
  3. MERREM [Suspect]
     Indication: TOOTH DISORDER
     Dosage: 500 MG Q12 H IV MINIBAG
     Route: 042
     Dates: start: 20040304, end: 20040323
  4. LASIX [Concomitant]
  5. ACCIPRIL [Concomitant]
  6. PROBERECID [Concomitant]
  7. LORTAB [Concomitant]
  8. PROPRANOLOL [Concomitant]
  9. TAPOZOLE [Concomitant]
  10. XANAX [Concomitant]
  11. TYLENOL (CAPLET) [Concomitant]

REACTIONS (1)
  - RASH [None]
